FAERS Safety Report 9850381 (Version 2)
Quarter: 2014Q1

REPORT INFORMATION
  Report Type: Report from Study
  Country: FR (occurrence: FR)
  Receive Date: 20140128
  Receipt Date: 20140128
  Transmission Date: 20141002
  Serious: Yes (Death, Life-Threatening, Hospitalization)
  Sender: FDA-Public Use
  Company Number: FR-OTSUKA-US-2011-10851

PATIENT
  Sex: 0

DRUGS (3)
  1. BUSULFEX [Suspect]
     Indication: ACUTE MYELOID LEUKAEMIA
     Dosage: 3.2 MG/KG, UNK
     Route: 042
     Dates: start: 20110329, end: 20110401
  2. BUSULFEX [Suspect]
     Dosage: 3.1 MG/KG, QD
     Route: 042
     Dates: end: 20110401
  3. CYCLOPHOSPHAMIDE [Concomitant]
     Indication: ACUTE MYELOID LEUKAEMIA
     Dosage: 60 MG/KG, QD
     Route: 042
     Dates: start: 20110403, end: 20110404

REACTIONS (4)
  - Fungal infection [Fatal]
  - Renal failure [Unknown]
  - Chronic graft versus host disease [Fatal]
  - Cytomegalovirus infection [Unknown]
